FAERS Safety Report 25584804 (Version 1)
Quarter: 2025Q3

REPORT INFORMATION
  Report Type: Spontaneous
  Country: US (occurrence: US)
  Receive Date: 20250721
  Receipt Date: 20250721
  Transmission Date: 20251020
  Serious: Yes (Other)
  Sender: SANOFI AVENTIS
  Company Number: US-SA-2025SA208433

PATIENT
  Age: 66 Year
  Sex: Female
  Weight: 48.64 kg

DRUGS (14)
  1. DUPIXENT [Suspect]
     Active Substance: DUPILUMAB
     Indication: Dermatitis atopic
     Dosage: 300 MG, QOW
     Route: 058
  2. BIOTIN [Concomitant]
     Active Substance: BIOTIN
  3. VITAMIN C [Concomitant]
     Active Substance: ASCORBIC ACID
  4. CALCIUM CARBONATE\CHOLECALCIFEROL [Concomitant]
     Active Substance: CALCIUM CARBONATE\CHOLECALCIFEROL
  5. TRULANCE [Concomitant]
     Active Substance: PLECANATIDE
  6. OPZELURA [Concomitant]
     Active Substance: RUXOLITINIB PHOSPHATE
  7. METRONIDAZOLE [METRONIDAZOLE BENZOATE] [Concomitant]
  8. TRAZODONE HCL [Concomitant]
     Active Substance: TRAZODONE HYDROCHLORIDE
  9. ROSUVASTATIN CALCIUM [Concomitant]
     Active Substance: ROSUVASTATIN CALCIUM
  10. ESTRADIOL [Concomitant]
     Active Substance: ESTRADIOL
  11. ESTRADIOL / NORETHINDRONE ACETATE [Concomitant]
     Active Substance: ESTRADIOL\NORETHINDRONE ACETATE
  12. LEVOTHYROXINE SODIUM [Concomitant]
     Active Substance: LEVOTHYROXINE SODIUM
  13. TEMAZEPAM [Concomitant]
     Active Substance: TEMAZEPAM
  14. CEVIMELINE HYDROCHLORIDE [Concomitant]
     Active Substance: CEVIMELINE HYDROCHLORIDE

REACTIONS (4)
  - Small intestinal haemorrhage [Recovered/Resolved]
  - Blood iron decreased [Recovered/Resolved]
  - Weight decreased [Recovered/Resolved]
  - Gallbladder disorder [Recovered/Resolved]

NARRATIVE: CASE EVENT DATE: 20240101
